FAERS Safety Report 6342489-7 (Version None)
Quarter: 2009Q3

REPORT INFORMATION
  Report Type: 
  Country: None (occurrence: None)
  Receive Date: 20090908
  Receipt Date: 20090302
  Transmission Date: 20100115
  Serious: Yes (Hospitalization, Other)
  Sender: FDA-Public Use
  Company Number: US-ASTRAZENECA-2007UW06360

PATIENT
  Age: 31 Year
  Sex: Female
  Weight: 114.3 kg

DRUGS (15)
  1. SEROQUEL [Suspect]
     Indication: BIPOLAR DISORDER
     Route: 048
     Dates: start: 19970101
  2. SEROQUEL [Suspect]
     Indication: DEPRESSION
     Route: 048
     Dates: start: 19970101
  3. SEROQUEL [Suspect]
     Indication: POST-TRAUMATIC STRESS DISORDER
     Route: 048
     Dates: start: 19970101
  4. SEROQUEL [Suspect]
     Dosage: 20 MG, 200 MG
     Route: 048
     Dates: start: 20010901
  5. SEROQUEL [Suspect]
     Dosage: 20 MG, 200 MG
     Route: 048
     Dates: start: 20010901
  6. SEROQUEL [Suspect]
     Dosage: 20 MG, 200 MG
     Route: 048
     Dates: start: 20010901
  7. SEROQUEL [Suspect]
     Route: 048
     Dates: start: 20030609
  8. SEROQUEL [Suspect]
     Route: 048
     Dates: start: 20030609
  9. SEROQUEL [Suspect]
     Route: 048
     Dates: start: 20030609
  10. RISPERDAL [Concomitant]
     Dates: start: 20010101
  11. LITHIUM [Concomitant]
  12. DEPAKOTE [Concomitant]
  13. NEURONTIN [Concomitant]
     Dosage: 400MG 1 AT  MORNING AND 3 AT NIGHT
     Route: 048
  14. PROZAC [Concomitant]
     Dosage: 90 MG WEEKLY
     Route: 048
     Dates: start: 20010427
  15. HYDROCODONE BITARTRATE + ACETAMINOPHEN [Concomitant]
     Dosage: 10/500 STRENGTH
     Route: 048
     Dates: start: 20030822

REACTIONS (7)
  - BLOOD CHOLESTEROL INCREASED [None]
  - CELLULITIS [None]
  - DIABETES MELLITUS [None]
  - HYPERCHOLESTEROLAEMIA [None]
  - HYSTERECTOMY [None]
  - TYPE 2 DIABETES MELLITUS [None]
  - VAGINAL HAEMORRHAGE [None]
